FAERS Safety Report 9557737 (Version 1)
Quarter: 2013Q3

REPORT INFORMATION
  Report Type: Spontaneous
  Country: US (occurrence: None)
  Receive Date: 20130726
  Receipt Date: 20130726
  Transmission Date: 20140515
  Serious: Yes (Hospitalization)
  Sender: FDA-Public Use
  Company Number: UTC-031834

PATIENT
  Age: 41 Year
  Sex: Male

DRUGS (7)
  1. REMODULIN [Suspect]
     Indication: PULMONARY ARTERIAL HYPERTENSION
     Dosage: 57.6 UG/KG (0.04 UG/KG, 1 IN 1 MIN)
     Route: 041
     Dates: start: 20120514
  2. SILDENAFIL [Concomitant]
  3. MORPHINE SULFATE [Concomitant]
  4. VICODIN [Concomitant]
  5. ASPIRIN [Concomitant]
  6. ALLOPURINOL [Concomitant]
  7. TRACLEER [Concomitant]

REACTIONS (2)
  - Sepsis [None]
  - Injection site infection [None]
